FAERS Safety Report 25129124 (Version 1)
Quarter: 2025Q1

REPORT INFORMATION
  Report Type: Spontaneous
  Country: US (occurrence: US)
  Receive Date: 20250327
  Receipt Date: 20250327
  Transmission Date: 20250408
  Serious: No
  Sender: ANI
  Company Number: US-ANIPHARMA-2024-US-062235

PATIENT
  Sex: Female
  Weight: 88.91 kg

DRUGS (7)
  1. CORTICOTROPIN [Suspect]
     Active Substance: CORTICOTROPIN
     Indication: Rheumatoid arthritis
     Route: 058
     Dates: start: 202405
  2. GABAPENTIN [Concomitant]
     Active Substance: GABAPENTIN
  3. SYNTHROID [Concomitant]
     Active Substance: LEVOTHYROXINE SODIUM
  4. OXYCODONE [Concomitant]
     Active Substance: OXYCODONE
  5. TRAZODONE [Concomitant]
     Active Substance: TRAZODONE HYDROCHLORIDE
  6. ESTRACE [Concomitant]
     Active Substance: ESTRADIOL
  7. VITAMINS [Concomitant]
     Active Substance: VITAMINS

REACTIONS (3)
  - Seborrhoea [Recovered/Resolved]
  - Acne [Recovered/Resolved]
  - Skin odour abnormal [Recovered/Resolved]
